FAERS Safety Report 19471402 (Version 1)
Quarter: 2021Q2

REPORT INFORMATION
  Report Type: Spontaneous
  Country: US (occurrence: US)
  Receive Date: 20210628
  Receipt Date: 20210628
  Transmission Date: 20210717
  Serious: Yes (Hospitalization)
  Sender: FDA-Public Use
  Company Number: None

PATIENT
  Age: 34 Year
  Sex: Female
  Weight: 69.75 kg

DRUGS (13)
  1. LUNESTA [Concomitant]
     Active Substance: ESZOPICLONE
  2. MODAFINIL. [Concomitant]
     Active Substance: MODAFINIL
  3. FLUDROCORTISONE [Concomitant]
     Active Substance: FLUDROCORTISONE
  4. COMPAZINE [Suspect]
     Active Substance: PROCHLORPERAZINE MALEATE
     Indication: SEROTONIN SYNDROME
     Dosage: ?          QUANTITY:1 INJECTION(S);?
     Route: 042
     Dates: start: 20210530, end: 20210530
  5. DEXILANT [Concomitant]
     Active Substance: DEXLANSOPRAZOLE
  6. INTERSTIM [Concomitant]
  7. L4?L5 SPINAL FUSION WITH CAGE [Concomitant]
  8. MIDODRINE [Concomitant]
     Active Substance: MIDODRINE
  9. HYOSCYAMINE. [Concomitant]
     Active Substance: HYOSCYAMINE
  10. LINZESS [Concomitant]
     Active Substance: LINACLOTIDE
  11. COMPAZINE [Suspect]
     Active Substance: PROCHLORPERAZINE MALEATE
     Indication: MIGRAINE
     Dosage: ?          QUANTITY:1 INJECTION(S);?
     Route: 042
     Dates: start: 20210530, end: 20210530
  12. EMGALITY [Concomitant]
     Active Substance: GALCANEZUMAB-GNLM
  13. METHOCARBAMOL. [Concomitant]
     Active Substance: METHOCARBAMOL

REACTIONS (4)
  - Unresponsive to stimuli [None]
  - Feeling hot [None]
  - Fall [None]
  - Movement disorder [None]

NARRATIVE: CASE EVENT DATE: 20210530
